FAERS Safety Report 4713667-5 (Version None)
Quarter: 2005Q3

REPORT INFORMATION
  Report Type: 
  Country: None (occurrence: None)
  Receive Date: 20050713
  Receipt Date: 20050630
  Transmission Date: 20060218
  Serious: No
  Sender: FDA-Public Use
  Company Number: USA050289721

PATIENT
  Age: 48 Year
  Sex: Female
  Weight: 52.1637 kg

DRUGS (7)
  1. STRATTERA [Suspect]
     Indication: ATTENTION DEFICIT/HYPERACTIVITY DISORDER
     Dosage: 40MG/2 DAY
     Dates: start: 20050202
  2. ZYPREXA [Suspect]
     Indication: DEPRESSION
     Dosage: 10 MG DAY
     Dates: start: 20041101, end: 20050401
  3. LEXAPRO [Concomitant]
  4. EFFEXOR [Concomitant]
  5. CYTOMEL [Concomitant]
  6. SYNTHROID [Concomitant]
  7. ESTROGEN NOS [Concomitant]

REACTIONS (12)
  - ABNORMAL BEHAVIOUR [None]
  - ABNORMAL DREAMS [None]
  - ANXIETY [None]
  - CONFUSIONAL STATE [None]
  - DISTURBANCE IN ATTENTION [None]
  - DRUG EFFECT DECREASED [None]
  - HYPERHIDROSIS [None]
  - INSOMNIA [None]
  - PHARMACEUTICAL PRODUCT COMPLAINT [None]
  - SOMNOLENCE [None]
  - THINKING ABNORMAL [None]
  - WEIGHT INCREASED [None]
